FAERS Safety Report 14552605 (Version 1)
Quarter: 2018Q1

REPORT INFORMATION
  Report Type: Spontaneous
  Country: US (occurrence: US)
  Receive Date: 20180216
  Receipt Date: 20180216
  Transmission Date: 20180509
  Serious: Yes (Hospitalization)
  Sender: FDA-Public Use
  Company Number: None

PATIENT
  Age: 57 Year
  Sex: Female

DRUGS (19)
  1. ALPRAZOLAM. [Concomitant]
     Active Substance: ALPRAZOLAM
  2. VALACYCLOVIR [Concomitant]
     Active Substance: VALACYCLOVIR HYDROCHLORIDE
  3. ESOMEPRAZOLE [Concomitant]
     Active Substance: ESOMEPRAZOLE
  4. ZOVIRAX [Concomitant]
     Active Substance: ACYCLOVIR
  5. LEVOTHYROXINE. [Concomitant]
     Active Substance: LEVOTHYROXINE
  6. ESTRADIOL. [Concomitant]
     Active Substance: ESTRADIOL
  7. LYRICA [Concomitant]
     Active Substance: PREGABALIN
  8. CARBAMAZEPINE. [Concomitant]
     Active Substance: CARBAMAZEPINE
  9. LIDOCAINE. [Concomitant]
     Active Substance: LIDOCAINE
  10. LEFLUNOMIDE. [Concomitant]
     Active Substance: LEFLUNOMIDE
  11. PAROXETINE. [Concomitant]
     Active Substance: PAROXETINE
  12. BREAO ELLIPTA [Concomitant]
  13. ROSUVASTATIN. [Concomitant]
     Active Substance: ROSUVASTATIN
  14. FOLIC ACID. [Concomitant]
     Active Substance: FOLIC ACID
  15. HUMIRA [Suspect]
     Active Substance: ADALIMUMAB
     Indication: RHEUMATOID ARTHRITIS
     Route: 058
     Dates: start: 20171129
  16. NICOTINE. [Concomitant]
     Active Substance: NICOTINE
  17. TIZANIDINE. [Concomitant]
     Active Substance: TIZANIDINE
  18. ATENOLOL. [Concomitant]
     Active Substance: ATENOLOL
  19. HCTZ [Concomitant]
     Active Substance: HYDROCHLOROTHIAZIDE

REACTIONS (1)
  - Fungal infection [None]

NARRATIVE: CASE EVENT DATE: 2018
